FAERS Safety Report 18763462 (Version 3)
Quarter: 2021Q1

REPORT INFORMATION
  Report Type: Spontaneous
  Country: JP (occurrence: JP)
  Receive Date: 20210120
  Receipt Date: 20210327
  Transmission Date: 20210419
  Serious: Yes (Hospitalization)
  Sender: FDA-Public Use
  Company Number: JP-ROCHE-2750625

PATIENT
  Age: 73 Year
  Sex: Male
  Weight: 55 kg

DRUGS (6)
  1. AVASTIN [Suspect]
     Active Substance: BEVACIZUMAB
     Indication: COLON CANCER
     Dosage: DOSE INTERVAL UNCERTAINTY
     Route: 041
     Dates: start: 20200310, end: 20201127
  2. TAKECAB [Concomitant]
     Active Substance: VONOPRAZAN FUMARATE
     Dosage: AFTER THE BREAKFAST
     Route: 048
     Dates: start: 20200811, end: 20201210
  3. TOPOTECIN [Suspect]
     Active Substance: IRINOTECAN HYDROCHLORIDE
     Indication: COLON CANCER
     Dosage: DOSE INTERVAL UNCERTAINTY
     Route: 041
     Dates: start: 20201113, end: 20201127
  4. DECADRON [Concomitant]
     Active Substance: DEXAMETHASONE
     Dosage: AFTER THE BREAKFAST
     Route: 048
     Dates: start: 20200512, end: 20201117
  5. CANDESARTAN. [Concomitant]
     Active Substance: CANDESARTAN
     Dosage: AFTER THE BREAKFAST
     Route: 048
     Dates: start: 20201113, end: 20201210
  6. S?1TAIHO OD [Suspect]
     Active Substance: GIMERACIL\OTERACIL\TEGAFUR
     Indication: COLON CANCER
     Route: 048
     Dates: start: 20201113, end: 20201126

REACTIONS (2)
  - Interstitial lung disease [Recovered/Resolved]
  - Diarrhoea [Unknown]

NARRATIVE: CASE EVENT DATE: 20201207
